FAERS Safety Report 9791297 (Version 2)
Quarter: 2015Q4

REPORT INFORMATION
  Report Type: Spontaneous
  Country: US (occurrence: US)
  Receive Date: 20140101
  Receipt Date: 20151102
  Transmission Date: 20160305
  Serious: No
  Sender: FDA-Public Use
  Company Number: US-BIOGENIDEC-2013BI124417

PATIENT
  Age: 49 Year
  Sex: Female

DRUGS (3)
  1. TYSABRI [Suspect]
     Active Substance: NATALIZUMAB
     Indication: MULTIPLE SCLEROSIS
     Route: 042
     Dates: start: 20080502
  2. AVONEX [Concomitant]
     Active Substance: INTERFERON BETA-1A
     Indication: MULTIPLE SCLEROSIS
     Route: 030
  3. TYSABRI [Suspect]
     Active Substance: NATALIZUMAB
     Indication: MULTIPLE SCLEROSIS
     Route: 042
     Dates: start: 20080501, end: 20141205

REACTIONS (1)
  - Malaise [Unknown]

NARRATIVE: CASE EVENT DATE: 201312
